FAERS Safety Report 8728059 (Version 3)
Quarter: 2013Q1

REPORT INFORMATION
  Report Type: Spontaneous
  Country: CO (occurrence: CO)
  Receive Date: 20120817
  Receipt Date: 20130308
  Transmission Date: 20140127
  Serious: Yes (Hospitalization, Other)
  Sender: FDA-Public Use
  Company Number: CO-AMGEN-COLSP2012051481

PATIENT
  Age: 67 Year
  Sex: Female

DRUGS (5)
  1. ENBREL [Suspect]
     Indication: RHEUMATOID ARTHRITIS
     Dosage: 50 MG, (MY CLICK)
     Route: 058
     Dates: start: 2006, end: 20120822
  2. ENBREL [Suspect]
     Dosage: UNK
  3. METHOTREXATE [Concomitant]
     Indication: RHEUMATOID ARTHRITIS
     Dosage: 6 TABLETS OF 5MG, WEEKLY
     Dates: start: 2005
  4. ENALAPRIL [Concomitant]
     Indication: HYPERTENSION
     Dosage: 5 MG, 1X/DAY
     Route: 048
     Dates: start: 2003
  5. ACETAMINOPHEN [Concomitant]
     Indication: PAIN
     Dosage: 500 MG, 2X/DAY
     Route: 048
     Dates: start: 1973

REACTIONS (14)
  - Hypertension [Unknown]
  - Arthropathy [Not Recovered/Not Resolved]
  - Malaise [Unknown]
  - Joint destruction [Unknown]
  - Arrhythmia [Unknown]
  - Osteoporosis [Not Recovered/Not Resolved]
  - Diabetes mellitus [Unknown]
  - Spinal pain [Unknown]
  - Arthralgia [Unknown]
  - Pain [Unknown]
  - Musculoskeletal stiffness [Unknown]
  - Neck pain [Unknown]
  - Drug ineffective [Unknown]
  - Urinary tract infection [Unknown]
